FAERS Safety Report 20369221 (Version 1)
Quarter: 2022Q1

REPORT INFORMATION
  Report Type: Spontaneous
  Country: US (occurrence: None)
  Receive Date: 20220124
  Receipt Date: 20220124
  Transmission Date: 20220424
  Serious: Yes (Hospitalization)
  Sender: FDA-Public Use
  Company Number: None

PATIENT
  Sex: Male
  Weight: 65.75 kg

DRUGS (1)
  1. BLEOMYCIN [Suspect]
     Active Substance: BLEOMYCIN SULFATE

REACTIONS (3)
  - Pyrexia [None]
  - Oropharyngeal pain [None]
  - Chest pain [None]

NARRATIVE: CASE EVENT DATE: 20210813
